FAERS Safety Report 11785287 (Version 4)
Quarter: 2019Q1

REPORT INFORMATION
  Report Type: Report from Study
  Country: CA (occurrence: CA)
  Receive Date: 20151130
  Receipt Date: 20190320
  Transmission Date: 20190417
  Serious: Yes (Other)
  Sender: FDA-Public Use
  Company Number: PHHY2013CA088482

PATIENT
  Age: 56 Year
  Sex: Female

DRUGS (3)
  1. SANDOSTATIN LAR DEPOT [Suspect]
     Active Substance: OCTREOTIDE ACETATE
     Dosage: 30 MG, QMO (EVERY 4 WEEKS)
     Route: 030
     Dates: start: 20161020
  2. SANDOSTATIN LAR DEPOT [Suspect]
     Active Substance: OCTREOTIDE ACETATE
     Indication: NEUROENDOCRINE TUMOUR
     Dosage: 20 MG, QMO (EVERY 4 WEEKS)
     Route: 030
     Dates: start: 20130703
  3. SANDOSTATIN LAR DEPOT [Suspect]
     Active Substance: OCTREOTIDE ACETATE
     Dosage: 20 MG, QMO (ONCE A MONTH)
     Route: 030
     Dates: start: 20140908

REACTIONS (17)
  - Meniere^s disease [Unknown]
  - Vertigo [Unknown]
  - Dizziness [Recovered/Resolved]
  - Hypotension [Unknown]
  - Abdominal distension [Unknown]
  - Flatulence [Unknown]
  - Hypoacusis [Unknown]
  - Sensory disturbance [Unknown]
  - Pain [Unknown]
  - Vomiting [Unknown]
  - Flank pain [Unknown]
  - Body temperature decreased [Not Recovered/Not Resolved]
  - Injection site pain [Unknown]
  - Back pain [Unknown]
  - Nausea [Unknown]
  - Injection site discomfort [Unknown]
  - Fatigue [Not Recovered/Not Resolved]

NARRATIVE: CASE EVENT DATE: 20130805
